FAERS Safety Report 21508022 (Version 2)
Quarter: 2024Q1

REPORT INFORMATION
  Report Type: Spontaneous
  Country: FR (occurrence: None)
  Receive Date: 20221026
  Receipt Date: 20240202
  Transmission Date: 20240410
  Serious: Yes (Hospitalization, Other)
  Sender: FDA-Public Use
  Company Number: 2022A350102

PATIENT
  Age: 76 Year
  Sex: Female
  Weight: 75 kg

DRUGS (4)
  1. DAPAGLIFLOZIN [Suspect]
     Active Substance: DAPAGLIFLOZIN
     Indication: Ischaemic heart disease prophylaxis
     Dosage: 10 MG/DAY
     Route: 048
     Dates: start: 202209, end: 20220929
  2. ESOMEPRAZOLE [Suspect]
     Active Substance: ESOMEPRAZOLE
     Indication: Product used for unknown indication
     Route: 048
     Dates: start: 202209, end: 20220926
  3. RAMIPRIL [Suspect]
     Active Substance: RAMIPRIL
     Indication: Ischaemic heart disease prophylaxis
     Route: 048
     Dates: start: 202209, end: 20220926
  4. EZETIMIBE\ROSUVASTATIN [Suspect]
     Active Substance: EZETIMIBE\ROSUVASTATIN
     Indication: Ischaemic heart disease prophylaxis
     Dosage: 1 / DAY
     Route: 048
     Dates: start: 202209, end: 20220929

REACTIONS (2)
  - Drug reaction with eosinophilia and systemic symptoms [Recovering/Resolving]
  - Acute kidney injury [Recovering/Resolving]

NARRATIVE: CASE EVENT DATE: 20220923
